FAERS Safety Report 11215006 (Version 1)
Quarter: 2015Q2

REPORT INFORMATION
  Report Type: Spontaneous
  Country: BE (occurrence: None)
  Receive Date: 20150622
  Receipt Date: 20150622
  Transmission Date: 20150821
  Serious: Yes (Death, Life-Threatening)
  Sender: FDA-Public Use
  Company Number: FK201502922

PATIENT
  Sex: Male

DRUGS (1)
  1. HEPARIN (MANUFACTURER UNKNOWN) (HEPARIN) (HEPARIN) [Suspect]
     Active Substance: HEPARIN SODIUM
     Indication: PRODUCT USED FOR UNKNOWN INDICATION

REACTIONS (2)
  - Heparin-induced thrombocytopenia [None]
  - Coronary artery thrombosis [None]
